FAERS Safety Report 7432147-X (Version None)
Quarter: 2011Q2

REPORT INFORMATION
  Report Type: 
  Country: None (occurrence: None)
  Receive Date: 20110422
  Receipt Date: 20110413
  Transmission Date: 20111010
  Serious: Yes (Other)
  Sender: FDA-Public Use
  Company Number: DE-JNJFOC-20110400486

PATIENT
  Age: 67 Year
  Sex: Female

DRUGS (5)
  1. METHOTREXATE [Concomitant]
  2. SIMPONI [Suspect]
     Indication: RHEUMATOID ARTHRITIS
     Route: 058
  3. SIMPONI [Suspect]
     Route: 058
  4. FOLIC ACID [Concomitant]
  5. PREDNISOLONE [Concomitant]

REACTIONS (6)
  - HOT FLUSH [None]
  - HYPERHIDROSIS [None]
  - HYPERTENSIVE CRISIS [None]
  - SKIN DISCOLOURATION [None]
  - EYELID OEDEMA [None]
  - PALPITATIONS [None]
